FAERS Safety Report 9907418 (Version 2)
Quarter: 2014Q1

REPORT INFORMATION
  Report Type: Spontaneous
  Country: JP (occurrence: JP)
  Receive Date: 20140218
  Receipt Date: 20140218
  Transmission Date: 20141002
  Serious: Yes (Hospitalization, Other)
  Sender: FDA-Public Use
  Company Number: JP-009507513-1401JPN011600

PATIENT
  Age: 37 Year
  Sex: Female
  Weight: 83 kg

DRUGS (5)
  1. JANUVIA TABLETS 50MG [Suspect]
     Indication: DIABETES MELLITUS
     Dosage: 50 MG, QD
     Route: 048
     Dates: start: 20110115, end: 20140103
  2. GLYCORAN [Concomitant]
     Indication: DIABETES MELLITUS
     Dosage: 250 MG, BID
     Route: 048
     Dates: start: 20130413, end: 20140103
  3. URSO [Concomitant]
     Indication: CHOLELITHIASIS
     Dosage: 100 MG, BID
     Route: 048
  4. BUSCOPAN [Concomitant]
     Indication: PSYCHOMOTOR HYPERACTIVITY
     Dosage: 10 MG, BID
     Route: 048
  5. EPL [Concomitant]
     Indication: HEPATITIS
     Dosage: 500 MG, TID
     Route: 048
     Dates: start: 20130909, end: 20140103

REACTIONS (3)
  - Hepatitis acute [Recovering/Resolving]
  - Cholecystectomy [Unknown]
  - Pancreatitis acute [Recovering/Resolving]
